FAERS Safety Report 4980270-1 (Version None)
Quarter: 2006Q2

REPORT INFORMATION
  Report Type: 
  Country: None (occurrence: None)
  Receive Date: 20060424
  Receipt Date: 20060413
  Transmission Date: 20061013
  Serious: Yes (Other)
  Sender: FDA-Public Use
  Company Number: PHBS2006CH05716

PATIENT
  Age: 65 Year
  Sex: Female

DRUGS (2)
  1. CLOZAPINE [Suspect]
     Dosage: 150 MG/D - PRN
     Route: 048
  2. HERBAL PREPARATION [Concomitant]

REACTIONS (2)
  - MENINGIOMA [None]
  - PAPILLOEDEMA [None]
